FAERS Safety Report 8866151 (Version 6)
Quarter: 2013Q2

REPORT INFORMATION
  Report Type: Report from Study
  Country: GB (occurrence: GB)
  Receive Date: 20121025
  Receipt Date: 20130503
  Transmission Date: 20140414
  Serious: Yes (Hospitalization)
  Sender: FDA-Public Use
  Company Number: GB-PFIZER INC-2012261523

PATIENT
  Age: 76 Year
  Sex: Male

DRUGS (12)
  1. SUNITINIB MALATE [Suspect]
     Indication: TRANSITIONAL CELL CARCINOMA
     Dosage: UNK
     Dates: start: 20120919, end: 20120925
  2. CISPLATIN [Suspect]
     Indication: TRANSITIONAL CELL CARCINOMA
     Dosage: UNK
     Dates: start: 20120919, end: 20120925
  3. GEMCITABINE [Suspect]
     Indication: TRANSITIONAL CELL CARCINOMA
     Dosage: UNK
     Dates: start: 20120919, end: 20120925
  4. AMITRIPTYLINE [Concomitant]
     Dosage: 20 MG, UNK
     Route: 048
  5. PARACETAMOL [Concomitant]
     Dosage: 1 G, UNK
     Route: 048
  6. GABAPENTIN [Concomitant]
     Dosage: 100 MG, UNK
     Route: 048
  7. OXYCONTIN [Concomitant]
     Dosage: 15 MG, UNK
     Route: 048
  8. LACTULOSE [Concomitant]
     Dosage: 15 ML, AS NEEDED
     Route: 048
  9. SENNA [Concomitant]
     Dosage: 2 DF, AS NEEDED
     Route: 048
  10. ONDANSETRON [Concomitant]
     Dosage: 4 MG, AS NEEDED
     Route: 048
  11. CYCLIZINE [Concomitant]
     Indication: NAUSEA
     Dosage: 50 MG, AS NEEDED
     Route: 048
  12. OXYNORM [Concomitant]
     Indication: PAIN
     Dosage: 5 MG, AS NEEDED
     Route: 048

REACTIONS (4)
  - Neutropenic sepsis [Recovered/Resolved]
  - Nausea [Recovered/Resolved]
  - Vomiting [Recovered/Resolved]
  - Mucosal inflammation [Recovered/Resolved]
